FAERS Safety Report 11189528 (Version 3)
Quarter: 2016Q3

REPORT INFORMATION
  Report Type: Report from Study
  Country: CZ (occurrence: CZ)
  Receive Date: 20150611
  Receipt Date: 20160728
  Transmission Date: 20161109
  Serious: Yes (Death, Life-Threatening, Hospitalization, Other)
  Sender: FDA-Public Use
  Company Number: 2015SGN00902

PATIENT

DRUGS (22)
  1. METRONIDAZOLE. [Concomitant]
     Active Substance: METRONIDAZOLE
     Dosage: UNK
  2. METRONIDAZOLE. [Concomitant]
     Active Substance: METRONIDAZOLE
     Route: 065
  3. MEROPENEM. [Concomitant]
     Active Substance: MEROPENEM
     Dosage: UNK
  4. TIGECYCLINE. [Concomitant]
     Active Substance: TIGECYCLINE
     Dosage: UNK
  5. BRENTUXIMAB VEDOTIN [Suspect]
     Active Substance: BRENTUXIMAB VEDOTIN
     Indication: ANAPLASTIC LARGE CELL LYMPHOMA T- AND NULL-CELL TYPES
  6. SULFAMETHOXAZOLE AND TRIMETHOPRIM [Concomitant]
     Active Substance: SULFAMETHOXAZOLE\TRIMETHOPRIM
     Dosage: UNK
  7. AMIKACIN [Concomitant]
     Active Substance: AMIKACIN
     Dosage: UNK
  8. BRENTUXIMAB VEDOTIN [Suspect]
     Active Substance: BRENTUXIMAB VEDOTIN
     Indication: LYMPHOMA
     Dosage: 74 MG, UNK
     Route: 042
     Dates: start: 20150521, end: 20150521
  9. ALLOPURINOL. [Concomitant]
     Active Substance: ALLOPURINOL
     Route: 065
  10. ALLOPURINOL. [Concomitant]
     Active Substance: ALLOPURINOL
     Dosage: UNK
  11. OMEPRAZOLE. [Concomitant]
     Active Substance: OMEPRAZOLE
     Dosage: UNK
     Route: 065
  12. METAMIZOLE                         /06276704/ [Concomitant]
     Active Substance: METAMIZOLE SODIUM
     Indication: PYREXIA
     Dosage: UNK
     Route: 065
  13. FOLIC ACID. [Concomitant]
     Active Substance: FOLIC ACID
     Dosage: UNK
  14. FOLIC ACID. [Concomitant]
     Active Substance: FOLIC ACID
     Route: 065
  15. AMIKACIN [Concomitant]
     Active Substance: AMIKACIN
     Route: 065
  16. GENTAMICINE [Concomitant]
     Active Substance: GENTAMICIN
     Dosage: UNK
     Route: 065
  17. SULFAMETHOXAZOLE AND TRIMETHOPRIM [Concomitant]
     Active Substance: SULFAMETHOXAZOLE\TRIMETHOPRIM
     Route: 065
  18. PARENTERAL NUTRITION [Concomitant]
     Active Substance: AMINO ACIDS\DEXTROSE\ELECTROLYTES NOS
     Dosage: UNK
     Route: 065
  19. AMOXYCILLIN                        /00249601/ [Concomitant]
     Active Substance: AMOXICILLIN
     Dosage: UNK
     Route: 065
  20. G-CSF [Concomitant]
     Active Substance: GRANULOCYTE COLONY-STIMULATING FACTOR NOS
     Dosage: UNK
     Route: 065
  21. MEROPENEM. [Concomitant]
     Active Substance: MEROPENEM
     Route: 065
  22. TIGECYCLINE. [Concomitant]
     Active Substance: TIGECYCLINE
     Route: 065

REACTIONS (4)
  - Hypotension [Recovering/Resolving]
  - Anaplastic large cell lymphoma T- and null-cell types [Fatal]
  - Haematemesis [Recovering/Resolving]
  - Upper gastrointestinal haemorrhage [Fatal]

NARRATIVE: CASE EVENT DATE: 20150526
